FAERS Safety Report 5831993-3 (Version None)
Quarter: 2008Q3

REPORT INFORMATION
  Report Type: 
  Country: None (occurrence: None)
  Receive Date: 20080804
  Receipt Date: 20080725
  Transmission Date: 20090109
  Serious: Yes (Other)
  Sender: FDA-Public Use
  Company Number: CA-AMGEN-QUU297619

PATIENT
  Age: 56 Year
  Sex: Female

DRUGS (15)
  1. NEULASTA [Suspect]
     Indication: CHEMOTHERAPY
     Route: 058
  2. ASPIRIN [Concomitant]
  3. ATENOLOL [Concomitant]
  4. CELEXA [Concomitant]
  5. CLONAZEPAM [Concomitant]
  6. CLONIDINE [Concomitant]
  7. CRESTOR [Concomitant]
  8. CYCLOBENZAPRINE HCL [Concomitant]
  9. CYCLOPHOSPHAMIDE [Concomitant]
  10. DOXORUBICIN HCL [Concomitant]
  11. FOLIC ACID [Concomitant]
  12. FUROSEMIDE [Concomitant]
  13. LEVOTHYROXINE SODIUM [Concomitant]
  14. TALWIN [Concomitant]
  15. TORADOL [Concomitant]

REACTIONS (7)
  - ANGINA PECTORIS [None]
  - CHEST PAIN [None]
  - CONJUNCTIVITIS [None]
  - EYE IRRITATION [None]
  - LACRIMAL DISORDER [None]
  - PRURITUS [None]
  - RASH PAPULAR [None]
